FAERS Safety Report 20835433 (Version 3)
Quarter: 2022Q2

REPORT INFORMATION
  Report Type: Other
  Country: US (occurrence: US)
  Receive Date: 20220516
  Receipt Date: 20220623
  Transmission Date: 20220721
  Serious: Yes (Other)
  Sender: FDA-Public Use
  Company Number: US-DECIPHERA PHARMACEUTICALS LLC-2022US000390

PATIENT
  Sex: Female
  Weight: 101 kg

DRUGS (1)
  1. QINLOCK [Suspect]
     Active Substance: RIPRETINIB
     Indication: Product used for unknown indication
     Dosage: 150 MILLIGRAM, QD
     Route: 048
     Dates: start: 20220429

REACTIONS (6)
  - Hyperthyroidism [Unknown]
  - Aphasia [Unknown]
  - Dysphagia [Not Recovered/Not Resolved]
  - Adverse event [Unknown]
  - Decreased appetite [Not Recovered/Not Resolved]
  - Product solubility abnormal [Unknown]
